FAERS Safety Report 20671150 (Version 3)
Quarter: 2022Q2

REPORT INFORMATION
  Report Type: Spontaneous
  Country: PA (occurrence: PA)
  Receive Date: 20220404
  Receipt Date: 20220510
  Transmission Date: 20220721
  Serious: Yes (Other)
  Sender: FDA-Public Use
  Company Number: PA-PFIZER INC-202200498780

PATIENT
  Age: 75 Year
  Sex: Male

DRUGS (1)
  1. SUTENT [Suspect]
     Active Substance: SUNITINIB MALATE
     Dosage: 1X/DAY, FOR 2 WEEKS AND RESTS FOR 1 WEEK

REACTIONS (2)
  - Bronchitis [Not Recovered/Not Resolved]
  - Off label use [Unknown]
